FAERS Safety Report 9125894 (Version 1)
Quarter: 2013Q1

REPORT INFORMATION
  Report Type: Spontaneous
  Country: US (occurrence: US)
  Receive Date: 20130117
  Receipt Date: 20130117
  Transmission Date: 20140127
  Serious: Yes (Disabling)
  Sender: FDA-Public Use
  Company Number: US-PFIZER INC-2013020376

PATIENT
  Age: 92 Year
  Sex: Female
  Weight: 35.83 kg

DRUGS (1)
  1. LIPITOR [Suspect]
     Indication: CARDIAC DISORDER
     Dosage: 10 MG, DAILY
     Route: 048

REACTIONS (1)
  - Paralysis [Recovering/Resolving]
